FAERS Safety Report 16371697 (Version 1)
Quarter: 2019Q2

REPORT INFORMATION
  Report Type: Spontaneous
  Country: BR (occurrence: BR)
  Receive Date: 20190530
  Receipt Date: 20190530
  Transmission Date: 20190711
  Serious: Yes (Other)
  Sender: FDA-Public Use
  Company Number: BR-TAKEDA-2019TUS033318

PATIENT
  Sex: Male

DRUGS (2)
  1. VELCADE [Suspect]
     Active Substance: BORTEZOMIB
     Dosage: UNK
     Route: 065
     Dates: start: 2018, end: 2019
  2. VELCADE [Suspect]
     Active Substance: BORTEZOMIB
     Indication: RENAL AMYLOIDOSIS
     Dosage: UNK, 1/WEEK
     Route: 065
     Dates: start: 2012

REACTIONS (6)
  - Disease progression [Unknown]
  - Therapeutic response unexpected [Unknown]
  - Product use in unapproved indication [Unknown]
  - Toxicity to various agents [Unknown]
  - Drug ineffective [Unknown]
  - Off label use [Unknown]
